FAERS Safety Report 5695025-2 (Version None)
Quarter: 2008Q2

REPORT INFORMATION
  Report Type: 
  Country: None (occurrence: None)
  Receive Date: 20080404
  Receipt Date: 20080328
  Transmission Date: 20081010
  Serious: Yes (Life-Threatening, Hospitalization)
  Sender: FDA-Public Use
  Company Number: GB-ROCHE-555870

PATIENT
  Age: 41 Year
  Sex: Male
  Weight: 80 kg

DRUGS (4)
  1. CEFTRIAXONE SODIUM [Suspect]
     Indication: CELLULITIS
     Route: 042
  2. FLOXACILLIN SODIUM [Suspect]
     Indication: CELLULITIS
     Route: 048
  3. CETIRIZINE HCL [Concomitant]
     Route: 048
  4. ACETAMINOPHEN [Concomitant]
     Indication: PAIN

REACTIONS (4)
  - ANAPHYLACTIC REACTION [None]
  - OEDEMA PERIPHERAL [None]
  - RASH [None]
  - SWELLING FACE [None]
